FAERS Safety Report 12863921 (Version 2)
Quarter: 2016Q4

REPORT INFORMATION
  Report Type: Spontaneous
  Country: SE (occurrence: SE)
  Receive Date: 20161019
  Receipt Date: 20161031
  Transmission Date: 20170207
  Serious: Yes (Hospitalization, Other)
  Sender: FDA-Public Use
  Company Number: SE-TAKEDA-2016TUS018616

PATIENT
  Sex: Male
  Weight: 74 kg

DRUGS (2)
  1. ASACOL [Concomitant]
     Active Substance: MESALAMINE
     Indication: COLITIS ULCERATIVE
     Dosage: 800 MG, UNK
     Route: 048
     Dates: start: 20100601
  2. ENTYVIO [Suspect]
     Active Substance: VEDOLIZUMAB
     Indication: COLITIS ULCERATIVE
     Dosage: 300 MG, UNK
     Route: 065
     Dates: start: 20141023

REACTIONS (3)
  - Tonsillitis [Recovered/Resolved]
  - Peritonsillar abscess [Recovered/Resolved]
  - Fusobacterium infection [Recovered/Resolved]

NARRATIVE: CASE EVENT DATE: 20160627
